FAERS Safety Report 8229430-7 (Version None)
Quarter: 2012Q1

REPORT INFORMATION
  Report Type: 
  Country: None (occurrence: None)
  Receive Date: 20120322
  Receipt Date: 20120316
  Transmission Date: 20120608
  Serious: Yes (Life-Threatening, Other)
  Sender: FDA-Public Use
  Company Number: US-CELGENEUS-163-21880-11100931

PATIENT
  Sex: Male

DRUGS (20)
  1. ACYCLOVIR [Concomitant]
     Indication: PROPHYLAXIS
     Dosage: 200 MILLIGRAM
     Route: 048
  2. REVLIMID [Suspect]
     Indication: MULTIPLE MYELOMA
     Dosage: 15 MILLIGRAM
     Route: 048
     Dates: start: 20110812, end: 20110922
  3. LABETALOL [Concomitant]
     Dosage: 200 MILLIGRAM
     Route: 048
  4. HUMALOG [Concomitant]
     Dosage: 12-20 UNITS
     Route: 065
  5. ATIVAN [Concomitant]
     Indication: ANXIETY
     Dosage: 1 MILLIGRAM
     Route: 065
  6. CLONIDINE [Concomitant]
     Indication: SINUS BRADYCARDIA
     Route: 065
  7. NORVASC [Concomitant]
     Indication: HYPERTENSION
     Dosage: 10 MILLIGRAM
     Route: 065
  8. LABETALOL [Concomitant]
     Indication: HYPERTENSION
     Dosage: 300 MILLIGRAM
     Route: 048
  9. DEXAMETHASONE [Concomitant]
     Route: 065
  10. COZAAR [Concomitant]
     Dosage: 100 MILLIGRAM
     Route: 048
  11. COMPAZINE [Concomitant]
     Indication: NAUSEA
     Dosage: 10 MILLIGRAM
     Route: 048
  12. AMLODIPINE BESYLATE [Concomitant]
     Indication: HYPERTENSION
     Dosage: 10 MILLIGRAM
     Route: 048
  13. COMPAZINE [Concomitant]
     Indication: VOMITING
     Route: 048
  14. REVLIMID [Suspect]
     Dosage: 15 MILLIGRAM
     Route: 048
     Dates: start: 20110924
  15. NORVASC [Concomitant]
     Dosage: 10MG IN THE MORNING AND 5MG AT NIGHT
     Route: 065
  16. FISH OIL [Concomitant]
     Route: 065
  17. CIPROFLOXACIN [Concomitant]
     Route: 065
  18. ASPIRIN [Concomitant]
     Indication: HYPERTENSION
     Dosage: 325 MILLIGRAM
     Route: 048
  19. LANTUS [Concomitant]
     Dosage: 34-40 UNITS
     Route: 058
  20. CLONIDINE [Concomitant]
     Dosage: 0.1
     Route: 048

REACTIONS (3)
  - CARDIO-RESPIRATORY ARREST [None]
  - SINUS BRADYCARDIA [None]
  - BILE DUCT STONE [None]
